FAERS Safety Report 17015114 (Version 1)
Quarter: 2019Q4

REPORT INFORMATION
  Report Type: Spontaneous
  Country: US (occurrence: US)
  Receive Date: 20191108
  Receipt Date: 20191108
  Transmission Date: 20200122
  Serious: Yes (Other)
  Sender: FDA-Public Use
  Company Number: None

PATIENT
  Sex: Female

DRUGS (14)
  1. FOSAMAX [Concomitant]
     Active Substance: ALENDRONATE SODIUM
  2. METOPROLOL TARTRATE. [Concomitant]
     Active Substance: METOPROLOL TARTRATE
  3. MAGNESIUM [Concomitant]
     Active Substance: MAGNESIUM
  4. AZATHIOPRINE. [Concomitant]
     Active Substance: AZATHIOPRINE
  5. HYDROCHLOROT [Concomitant]
     Active Substance: HYDROCHLOROTHIAZIDE
  6. NEURONTIN [Concomitant]
     Active Substance: GABAPENTIN
  7. HUMIRA [Suspect]
     Active Substance: ADALIMUMAB
     Indication: COLITIS ULCERATIVE
     Dosage: ?          OTHER FREQUENCY:QOWK;?
     Route: 058
     Dates: start: 20170803
  8. CRUSH VIT [Concomitant]
  9. MULTIVITAMIN [Concomitant]
     Active Substance: VITAMINS
  10. PERCOCET [Concomitant]
     Active Substance: ACETAMINOPHEN\OXYCODONE HYDROCHLORIDE
  11. SAVAYSA [Concomitant]
     Active Substance: EDOXABAN TOSYLATE
  12. K-TAB [Concomitant]
     Active Substance: POTASSIUM CHLORIDE
  13. PREDNISONE. [Concomitant]
     Active Substance: PREDNISONE
  14. SULFAZINE [Concomitant]
     Active Substance: SULFASALAZINE

REACTIONS (2)
  - Therapy cessation [None]
  - Surgery [None]
